FAERS Safety Report 12825222 (Version 2)
Quarter: 2017Q4

REPORT INFORMATION
  Report Type: Report from Study
  Country: US (occurrence: US)
  Receive Date: 20161006
  Receipt Date: 20171004
  Transmission Date: 20180320
  Serious: No
  Sender: FDA-Public Use
  Company Number: US-AMGEN-USASL2016072262

PATIENT
  Age: 73 Year
  Sex: Female

DRUGS (1)
  1. PROLIA [Suspect]
     Active Substance: DENOSUMAB
     Indication: OSTEOPOROSIS POSTMENOPAUSAL
     Dosage: 60 MG, Q6MO
     Route: 065
     Dates: start: 20151110

REACTIONS (12)
  - Somnolence [Unknown]
  - Malaise [Recovered/Resolved]
  - Spinal deformity [Recovering/Resolving]
  - Back pain [Not Recovered/Not Resolved]
  - Pain in jaw [Unknown]
  - Asthenia [Unknown]
  - Influenza like illness [Recovered/Resolved]
  - Arthritis [Recovering/Resolving]
  - General physical health deterioration [Recovering/Resolving]
  - Myalgia [Not Recovered/Not Resolved]
  - Pain in extremity [Recovering/Resolving]
  - Bone pain [Not Recovered/Not Resolved]

NARRATIVE: CASE EVENT DATE: 201511
